FAERS Safety Report 23985088 (Version 1)
Quarter: 2024Q2

REPORT INFORMATION
  Report Type: Spontaneous
  Country: QA (occurrence: QA)
  Receive Date: 20240618
  Receipt Date: 20240618
  Transmission Date: 20240715
  Serious: Yes (Life-Threatening, Hospitalization)
  Sender: FDA-Public Use
  Company Number: QA-MLMSERVICE-20240531-PI084510-00108-1

PATIENT
  Age: 30 Year
  Sex: Male

DRUGS (5)
  1. CLOZAPINE [Suspect]
     Active Substance: CLOZAPINE
     Indication: Schizophrenia
  2. METOCLOPRAMIDE [Suspect]
     Active Substance: METOCLOPRAMIDE
     Indication: Product used for unknown indication
     Dosage: HE HAD RECEIVED FIVE DOSES OF METOCLOPRAMIDE 10 MG INTRAVENOUSLY (AT DAYS 1, 3, 4, 6, AND 7)
     Route: 042
  3. HALOPERIDOL [Suspect]
     Active Substance: HALOPERIDOL
     Indication: Schizophrenia
     Dosage: TWO DOSES OF HALOPERIDOL 3 MG
     Route: 042
  4. FLUOXETINE [Concomitant]
     Active Substance: FLUOXETINE HYDROCHLORIDE
     Indication: Schizophrenia
  5. VALPROIC ACID [Concomitant]
     Active Substance: VALPROIC ACID
     Indication: Schizophrenia

REACTIONS (3)
  - Neuroleptic malignant syndrome [Recovered/Resolved]
  - Overlap syndrome [Recovered/Resolved]
  - Serotonin syndrome [Recovered/Resolved]
